FAERS Safety Report 6285378-9 (Version None)
Quarter: 2009Q3

REPORT INFORMATION
  Report Type: 
  Country: None (occurrence: None)
  Receive Date: 20090727
  Receipt Date: 20081023
  Transmission Date: 20100115
  Serious: Yes (Hospitalization, Other)
  Sender: FDA-Public Use
  Company Number: US-PFIZER INC-2006085404

PATIENT
  Sex: Male
  Weight: 68.9 kg

DRUGS (3)
  1. DETROL LA [Suspect]
     Indication: HYPERTONIC BLADDER
     Route: 065
  2. LITHIUM CARBONATE [Concomitant]
     Route: 065
  3. MULTI-VITAMINS [Concomitant]
     Route: 065

REACTIONS (4)
  - HYPERTENSION [None]
  - LUNG NEOPLASM MALIGNANT [None]
  - NERVOUSNESS [None]
  - NOCTURIA [None]
